FAERS Safety Report 16485319 (Version 1)
Quarter: 2019Q2

REPORT INFORMATION
  Report Type: Report from Study
  Country: US (occurrence: US)
  Receive Date: 20190627
  Receipt Date: 20190627
  Transmission Date: 20190711
  Serious: Yes (Hospitalization, Other)
  Sender: FDA-Public Use
  Company Number: US-JNJFOC-20190629671

PATIENT
  Sex: Female

DRUGS (9)
  1. APAP/CODEINE                       /00116401/ [Concomitant]
  2. LEVOCETIRIZINE [Concomitant]
     Active Substance: LEVOCETIRIZINE
  3. SYNTHROID [Concomitant]
     Active Substance: LEVOTHYROXINE SODIUM
  4. ATORVASTATIN [Concomitant]
     Active Substance: ATORVASTATIN
  5. APAP [Concomitant]
     Active Substance: ACETAMINOPHEN
  6. FOLIC ACID. [Concomitant]
     Active Substance: FOLIC ACID
  7. VITAMIN D                          /07503901/ [Concomitant]
     Active Substance: VITAMIN D NOS
  8. LIDODERM [Concomitant]
     Active Substance: LIDOCAINE
  9. IMBRUVICA [Suspect]
     Active Substance: IBRUTINIB
     Indication: LYMPHOCYTIC LEUKAEMIA
     Dosage: 420 MG, QD
     Route: 048
     Dates: start: 20190305

REACTIONS (2)
  - Dyspnoea [Unknown]
  - Haemorrhage [Unknown]
